FAERS Safety Report 7276761-3 (Version None)
Quarter: 2011Q1

REPORT INFORMATION
  Report Type: 
  Country: None (occurrence: None)
  Receive Date: 20110206
  Receipt Date: 20110125
  Transmission Date: 20110831
  Serious: Yes (Other)
  Sender: FDA-Public Use
  Company Number: GB-BAYER-2011-010024

PATIENT
  Age: 77 Year
  Sex: Female

DRUGS (9)
  1. FOLIC ACID [Concomitant]
     Dosage: UNK
     Dates: start: 20100519
  2. ATENOLOL [Concomitant]
     Dosage: UNK
     Dates: start: 20100519
  3. METHOTREXATE [Concomitant]
     Dosage: UNK
     Dates: start: 20100712
  4. FOLIC ACID [Concomitant]
     Dosage: UNK
     Dates: start: 20100712
  5. ESCITALOPRAM [Concomitant]
     Dosage: UNK
     Dates: start: 20100712
  6. PARACETAMOL [Concomitant]
     Dosage: UNK
     Dates: start: 20100712
  7. ISONIAZID [Concomitant]
     Dosage: UNK
     Dates: start: 20100712
  8. ASPRO CLEAR [Suspect]
     Dosage: UNK
     Dates: start: 20110118
  9. ATORVASTATIN [Concomitant]
     Dosage: UNK
     Dates: start: 20100712

REACTIONS (2)
  - DIZZINESS [None]
  - CONFUSIONAL STATE [None]
